FAERS Safety Report 25322911 (Version 2)
Quarter: 2025Q3

REPORT INFORMATION
  Report Type: Spontaneous
  Country: US (occurrence: US)
  Receive Date: 20250516
  Receipt Date: 20250809
  Transmission Date: 20251021
  Serious: Yes (Death)
  Sender: ALEXION PHARMACEUTICALS
  Company Number: US-AstraZeneca-CH-00870283A

PATIENT
  Age: 74 Year
  Sex: Male

DRUGS (1)
  1. WAINUA [Suspect]
     Active Substance: EPLONTERSEN
     Indication: Acquired ATTR amyloidosis
     Dates: start: 202408, end: 202503

REACTIONS (1)
  - Death [Fatal]

NARRATIVE: CASE EVENT DATE: 20250325
